FAERS Safety Report 4957694-1 (Version None)
Quarter: 2006Q1

REPORT INFORMATION
  Report Type: 
  Country: None (occurrence: None)
  Receive Date: 20060330
  Receipt Date: 20060325
  Transmission Date: 20060701
  Serious: Yes (Death)
  Sender: FDA-Public Use
  Company Number: KR-JNJFOC-20060304403

PATIENT
  Sex: Male
  Weight: 43 kg

DRUGS (2)
  1. REMINYL [Suspect]
     Indication: DEMENTIA ALZHEIMER'S TYPE
  2. KETAS [Concomitant]

REACTIONS (1)
  - PNEUMONIA ASPIRATION [None]
